FAERS Safety Report 8849580 (Version 1)
Quarter: 2012Q4

REPORT INFORMATION
  Report Type: 
  Country: US (occurrence: US)
  Receive Date: 20121019
  Receipt Date: 20121019
  Transmission Date: 20130627
  Serious: Yes (Other)
  Sender: FDA-Public Use
  Company Number: US-JNJFOC-20121009300

PATIENT
  Age: 61 Year
  Sex: Female
  Weight: 63.5 kg

DRUGS (5)
  1. BENADRYL ALLERGY ULTRATAB [Suspect]
     Indication: MULTIPLE ALLERGIES
     Route: 048
  2. POTASSIUM [Concomitant]
     Indication: MINERAL SUPPLEMENTATION
     Dosage: very long time
     Route: 065
  3. LISINOPRIL [Concomitant]
     Indication: HYPERTENSION
     Dosage: very long time
     Route: 065
  4. METOPROLOL [Concomitant]
     Indication: HYPERTENSION
     Dosage: very long time
     Route: 065
  5. PRAVASTATIN [Concomitant]
     Indication: BLOOD CHOLESTEROL
     Dosage: very long time
     Route: 065

REACTIONS (1)
  - Eye haemorrhage [Recovered/Resolved]
